FAERS Safety Report 11402571 (Version 1)
Quarter: 2015Q3

REPORT INFORMATION
  Report Type: Spontaneous
  Country: US (occurrence: US)
  Receive Date: 20150821
  Receipt Date: 20150821
  Transmission Date: 20151125
  Serious: No
  Sender: FDA-Public Use
  Company Number: US-ROCHE-1289397

PATIENT
  Sex: Female

DRUGS (2)
  1. PEGASYS [Suspect]
     Active Substance: PEGINTERFERON ALFA-2A
     Indication: CHRONIC HEPATITIS C
     Route: 065
     Dates: start: 20131012
  2. RIBASPHERE [Suspect]
     Active Substance: RIBAVIRIN
     Indication: CHRONIC HEPATITIS C
     Dosage: DIVIDED DOSES
     Route: 065

REACTIONS (12)
  - Injection site bruising [Unknown]
  - Tinnitus [Unknown]
  - Constipation [Unknown]
  - Disturbance in attention [Unknown]
  - Malaise [Unknown]
  - Insomnia [Unknown]
  - Headache [Unknown]
  - Myalgia [Unknown]
  - Influenza like illness [Unknown]
  - Dizziness [Unknown]
  - Wound [Unknown]
  - Vertigo [Unknown]
